FAERS Safety Report 14325249 (Version 1)
Quarter: 2017Q4

REPORT INFORMATION
  Report Type: Spontaneous
  Country: US (occurrence: US)
  Receive Date: 20171224
  Receipt Date: 20171224
  Transmission Date: 20180321
  Serious: Yes (Other)
  Sender: FDA-Public Use
  Company Number: None

PATIENT
  Age: 62 Year
  Sex: Female
  Weight: 52.65 kg

DRUGS (5)
  1. XANAX [Concomitant]
     Active Substance: ALPRAZOLAM
  2. RANITIDINE. [Concomitant]
     Active Substance: RANITIDINE
  3. BUPRENORPHINE TRANSDERMAL SYSTEM 15MCG/HOUR [Suspect]
     Active Substance: BUPRENORPHINE
     Indication: BACK PAIN
     Dosage: ?          QUANTITY:1 PATCH(ES);OTHER FREQUENCY:1/WEEK;?
     Route: 062
     Dates: start: 20170701, end: 20171223
  4. NORCO [Concomitant]
     Active Substance: ACETAMINOPHEN\HYDROCODONE BITARTRATE
  5. MULTI VITAMINS [Concomitant]
     Active Substance: VITAMINS

REACTIONS (3)
  - Confusional state [None]
  - Hypersensitivity [None]
  - Dizziness [None]

NARRATIVE: CASE EVENT DATE: 20171220
